FAERS Safety Report 6361369-4 (Version None)
Quarter: 2009Q3

REPORT INFORMATION
  Report Type: 
  Country: None (occurrence: None)
  Receive Date: 20090918
  Receipt Date: 20090913
  Transmission Date: 20100115
  Serious: Yes (Other)
  Sender: FDA-Public Use
  Company Number: B0594024A

PATIENT
  Sex: Male

DRUGS (1)
  1. AUGMENTIN '125' [Suspect]
     Indication: RESPIRATORY DISORDER
     Dosage: 400MG TWICE PER DAY
     Route: 065
     Dates: start: 20090909, end: 20090911

REACTIONS (1)
  - CONVULSION [None]
